FAERS Safety Report 5831902-7 (Version None)
Quarter: 2008Q3

REPORT INFORMATION
  Report Type: 
  Country: None (occurrence: None)
  Receive Date: 20080801
  Receipt Date: 20080801
  Transmission Date: 20090109
  Serious: Yes (Life-Threatening, Hospitalization)
  Sender: FDA-Public Use
  Company Number: None

PATIENT
  Sex: Male
  Weight: 88.905 kg

DRUGS (6)
  1. HEPARIN [Suspect]
     Indication: ANTICOAGULANT THERAPY
     Dosage: 3000 UNITS -APPROX- ONCE IVE
     Route: 042
     Dates: start: 20080731, end: 20080731
  2. HEPARIN [Suspect]
     Indication: DIALYSIS
     Dosage: 3000 UNITS -APPROX- ONCE IVE
     Route: 042
     Dates: start: 20080731, end: 20080731
  3. ZEMPLAR [Concomitant]
  4. CLONIDINE [Concomitant]
  5. DIPHENHYDRAMINE HCL [Concomitant]
  6. VENOFER [Concomitant]

REACTIONS (4)
  - DIARRHOEA [None]
  - HAEMOLYSIS [None]
  - RASH [None]
  - RESPIRATORY FAILURE [None]
